FAERS Safety Report 8438239 (Version 3)
Quarter: 2015Q1

REPORT INFORMATION
  Report Type: Spontaneous
  Country: US (occurrence: US)
  Receive Date: 20120302
  Receipt Date: 20150128
  Transmission Date: 20150721
  Serious: Yes (Other)
  Sender: FDA-Public Use
  Company Number: US-GLAXOSMITHKLINE-A0967657A

PATIENT
  Age: 59 Year
  Sex: Female
  Weight: 81.8 kg

DRUGS (17)
  1. AMERGE [Concomitant]
     Active Substance: NARATRIPTAN HYDROCHLORIDE
  2. AMBIEN [Concomitant]
     Active Substance: ZOLPIDEM TARTRATE
  3. SEROQUEL [Concomitant]
     Active Substance: QUETIAPINE FUMARATE
  4. INDERAL [Concomitant]
     Active Substance: PROPRANOLOL HYDROCHLORIDE
  5. TYKERB [Suspect]
     Active Substance: LAPATINIB DITOSYLATE
     Indication: BREAST CANCER METASTATIC
     Dosage: UNK
     Dates: start: 20110119
  6. TYKERB [Suspect]
     Active Substance: LAPATINIB DITOSYLATE
     Dosage: 1250 MG, QD
     Route: 048
     Dates: start: 2011
  7. TYKERB [Suspect]
     Active Substance: LAPATINIB DITOSYLATE
     Dosage: 750 MG, QD
     Route: 048
  8. ZYPREXA [Concomitant]
     Active Substance: OLANZAPINE
  9. ZOMETA [Concomitant]
     Active Substance: ZOLEDRONIC ACID
  10. LEXAPRO [Concomitant]
     Active Substance: ESCITALOPRAM OXALATE
  11. TYKERB [Suspect]
     Active Substance: LAPATINIB DITOSYLATE
     Indication: BREAST CANCER
     Dosage: 250 MG TABLET; 3 TABLETS EVERY MORNING AND 2 TABLETS EVERY NIGHT AT BEDTIME AS DIRECTED
     Route: 048
     Dates: start: 20110119
  12. HERCEPTIN [Concomitant]
     Active Substance: TRASTUZUMAB
  13. NEXIUM [Concomitant]
     Active Substance: ESOMEPRAZOLE MAGNESIUM
  14. PROPRANOLOL [Concomitant]
     Active Substance: PROPRANOLOL\PROPRANOLOL HYDROCHLORIDE
  15. NAMENDA [Concomitant]
     Active Substance: MEMANTINE HYDROCHLORIDE
  16. AVEENO [Concomitant]
     Active Substance: DIMETHICONE\HOMOSALATE\OCTINOXATE\OCTISALATE\TITANIUM DIOXIDE
  17. DOXEPIN HCL [Concomitant]
     Active Substance: DOXEPIN HYDROCHLORIDE

REACTIONS (8)
  - Rash pruritic [Recovered/Resolved]
  - Diarrhoea [Unknown]
  - Anorectal discomfort [Unknown]
  - Skin fissures [Unknown]
  - Nail disorder [Unknown]
  - Rash [Unknown]
  - Rectal haemorrhage [Unknown]
  - Erythema [Unknown]

NARRATIVE: CASE EVENT DATE: 20110119
